FAERS Safety Report 25469324 (Version 1)
Quarter: 2025Q2

REPORT INFORMATION
  Report Type: Spontaneous
  Country: IT (occurrence: IT)
  Receive Date: 20250623
  Receipt Date: 20250623
  Transmission Date: 20250717
  Serious: Yes (Hospitalization)
  Sender: MYLAN
  Company Number: None

PATIENT
  Age: 64 Year
  Sex: Female

DRUGS (4)
  1. GLATIRAMER ACETATE [Suspect]
     Active Substance: GLATIRAMER ACETATE
     Indication: Product used for unknown indication
     Dosage: UNK UNK, 3XW (1 VIAL 3 TIMES A WEEK)
     Dates: start: 201806, end: 20250328
  2. GLATIRAMER ACETATE [Suspect]
     Active Substance: GLATIRAMER ACETATE
     Dosage: UNK UNK, 3XW (1 VIAL 3 TIMES A WEEK)
     Route: 058
     Dates: start: 201806, end: 20250328
  3. GLATIRAMER ACETATE [Suspect]
     Active Substance: GLATIRAMER ACETATE
     Dosage: UNK UNK, 3XW (1 VIAL 3 TIMES A WEEK)
     Route: 058
     Dates: start: 201806, end: 20250328
  4. GLATIRAMER ACETATE [Suspect]
     Active Substance: GLATIRAMER ACETATE
     Dosage: UNK UNK, 3XW (1 VIAL 3 TIMES A WEEK)
     Dates: start: 201806, end: 20250328

REACTIONS (1)
  - Sarcomatoid carcinoma [Not Recovered/Not Resolved]

NARRATIVE: CASE EVENT DATE: 20241101
